FAERS Safety Report 5716310-1 (Version None)
Quarter: 2008Q2

REPORT INFORMATION
  Report Type: 
  Country: None (occurrence: None)
  Receive Date: 20080416
  Receipt Date: 20070821
  Transmission Date: 20081010
  Serious: Yes (Other)
  Sender: FDA-Public Use
  Company Number: PHEH2007US09143

PATIENT
  Sex: Female

DRUGS (5)
  1. FORADIL [Suspect]
     Indication: ASTHMA
     Dosage: 12 MCG, BID, INHALATION
     Route: 055
     Dates: start: 20070423, end: 20070509
  2. FORMOTEROL FUMARATE [Suspect]
     Dosage: OTHER
  3. ALBUTEROL [Concomitant]
  4. ATROVENT NEBULES (IPRATROPIUM BROMIDE) [Concomitant]
  5. ASMANEX TWISTHALER [Concomitant]

REACTIONS (3)
  - EXTRASYSTOLES [None]
  - HEART RATE IRREGULAR [None]
  - PALPITATIONS [None]
